FAERS Safety Report 11288046 (Version 2)
Quarter: 2015Q3

REPORT INFORMATION
  Report Type: Spontaneous
  Country: US (occurrence: US)
  Receive Date: 20150721
  Receipt Date: 20150731
  Transmission Date: 20151125
  Serious: Yes (Other)
  Sender: FDA-Public Use
  Company Number: US-AKORN PHARMACEUTICALS-2015AKN00404

PATIENT
  Age: 19 Year
  Sex: Female
  Weight: 58.5 kg

DRUGS (5)
  1. TOPIRAMATE. [Concomitant]
     Active Substance: TOPIRAMATE
     Dosage: 100 MG, UNK
     Route: 048
  2. KEPPRA [Concomitant]
     Active Substance: LEVETIRACETAM
     Dosage: 250 MG, UNK
     Route: 048
  3. MYORISAN [Suspect]
     Active Substance: ISOTRETINOIN
     Indication: ACNE
     Dosage: 40 MG, 1X/DAY
     Route: 048
     Dates: start: 20150504
  4. CLONAZEPAM. [Concomitant]
     Active Substance: CLONAZEPAM
     Dosage: 1 MG, UNK
     Route: 048
  5. VITAMIN D3 [Concomitant]
     Active Substance: CHOLECALCIFEROL
     Dosage: 1000 U, UNK
     Route: 048

REACTIONS (8)
  - Mood swings [Unknown]
  - Stress [Unknown]
  - Crying [Unknown]
  - Decreased interest [Unknown]
  - Tremor [Unknown]
  - Dizziness [Unknown]
  - Social avoidant behaviour [Unknown]
  - Emotional disorder [Unknown]

NARRATIVE: CASE EVENT DATE: 20150518
